FAERS Safety Report 7441072-X (Version None)
Quarter: 2011Q2

REPORT INFORMATION
  Report Type: 
  Country: None (occurrence: None)
  Receive Date: 20110427
  Receipt Date: 20090212
  Transmission Date: 20111010
  Serious: Yes (Other)
  Sender: FDA-Public Use
  Company Number: DE-GENENTECH-317589

PATIENT
  Age: 61 Year

DRUGS (1)
  1. LUCENTIS [Suspect]
     Indication: MACULAR DEGENERATION

REACTIONS (7)
  - EYE INFLAMMATION [None]
  - BONE PAIN [None]
  - VISUAL ACUITY REDUCED [None]
  - EYE INFECTION [None]
  - MALAISE [None]
  - VISION BLURRED [None]
  - VITREOUS DISORDER [None]
